FAERS Safety Report 8168714-8 (Version None)
Quarter: 2012Q1

REPORT INFORMATION
  Report Type: 
  Country: None (occurrence: None)
  Receive Date: 20120227
  Receipt Date: 20120222
  Transmission Date: 20120608
  Serious: Yes (Death)
  Sender: FDA-Public Use
  Company Number: CN-ASTRAZENECA-2012SE12223

PATIENT
  Age: 72 Year
  Sex: Female

DRUGS (2)
  1. DING'S XIAO ZHI FLUID [Suspect]
     Dosage: 10 ML MIXED SOLUTION
  2. LIDOCAINE [Suspect]

REACTIONS (3)
  - DYSPNOEA [None]
  - CARDIAC ARREST [None]
  - CYANOSIS [None]
